FAERS Safety Report 6128538-X (Version None)
Quarter: 2009Q1

REPORT INFORMATION
  Report Type: 
  Country: None (occurrence: None)
  Receive Date: 20090319
  Receipt Date: 20090309
  Transmission Date: 20090719
  Serious: Yes (Life-Threatening, Hospitalization)
  Sender: FDA-Public Use
  Company Number: PAR_02883_2009

PATIENT
  Age: 79 Year
  Sex: Female

DRUGS (4)
  1. IBUPROFEN [Suspect]
     Indication: SCIATICA
     Dosage: (1200 MG ORAL)
     Route: 048
     Dates: start: 20080401, end: 20081024
  2. GINGIUM (GINGIUM HEXAL - GINKGO BILOBA EXTRACT) (NOT SPECIFIED) [Suspect]
     Indication: DEMENTIA
     Dosage: (80 MG ORAL)
     Route: 048
     Dates: start: 20050101, end: 20081024
  3. FOLSAEURE [Concomitant]
  4. LACHSOEL KAPSELN (FISH OIL) [Concomitant]

REACTIONS (9)
  - ACTIVATED PARTIAL THROMBOPLASTIN TIME SHORTENED [None]
  - BLOOD PRESSURE FLUCTUATION [None]
  - DUODENAL ULCER HAEMORRHAGE [None]
  - MELAENA [None]
  - NAUSEA [None]
  - RED BLOOD CELL COUNT DECREASED [None]
  - THROMBIN TIME PROLONGED [None]
  - VOMITING [None]
  - WHITE BLOOD CELL COUNT INCREASED [None]
